FAERS Safety Report 25470305 (Version 1)
Quarter: 2025Q2

REPORT INFORMATION
  Report Type: Report from Study
  Country: US (occurrence: US)
  Receive Date: 20250623
  Receipt Date: 20250623
  Transmission Date: 20250717
  Serious: Yes (Other)
  Sender: ABBVIE
  Company Number: US-ABBVIE-6338195

PATIENT
  Age: 45 Year
  Sex: Male

DRUGS (1)
  1. VENETOCLAX [Suspect]
     Active Substance: VENETOCLAX
     Indication: Acute myeloid leukaemia
     Dosage: TAKE ON DAYS 1-14 OF EACH 28- DAY CYCLE. TAKE APPROXIMATELY 6 H AFTER MORNING DOSE OF DSP-5336. T...
     Route: 048

REACTIONS (1)
  - Pulmonary embolism [Unknown]
